FAERS Safety Report 4980941-7 (Version None)
Quarter: 2006Q2

REPORT INFORMATION
  Report Type: 
  Country: None (occurrence: None)
  Receive Date: 20060418
  Receipt Date: 20060403
  Transmission Date: 20061013
  Serious: Yes (Life-Threatening, Hospitalization)
  Sender: FDA-Public Use
  Company Number: 060403-0000309

PATIENT

DRUGS (2)
  1. INDOCIN [Suspect]
     Indication: PATENT DUCTUS ARTERIOSUS
     Dosage: 1 MG; IV
     Route: 042
     Dates: start: 20060313
  2. INDOCIN [Suspect]

REACTIONS (2)
  - DRUG INEFFECTIVE [None]
  - SEPSIS [None]
